FAERS Safety Report 18229652 (Version 5)
Quarter: 2021Q2

REPORT INFORMATION
  Report Type: Report from Study
  Country: CO (occurrence: CO)
  Receive Date: 20200903
  Receipt Date: 20210409
  Transmission Date: 20210717
  Serious: Yes (Hospitalization, Other)
  Sender: FDA-Public Use
  Company Number: CO-JNJFOC-A-CH2019-191416

PATIENT
  Age: 51 Year
  Sex: Female
  Weight: 64 kg

DRUGS (13)
  1. ILOPROST. [Concomitant]
     Active Substance: ILOPROST
     Dosage: ONE VIALS EVERY 4 HOURS, BUT SHE IS TAKING IT EVERY 6 HOURS
     Route: 055
     Dates: start: 2019
  2. CARDIOASPIRIN [Concomitant]
     Active Substance: ASPIRIN
  3. NITROFURANTOIN. [Suspect]
     Active Substance: NITROFURANTOIN
     Indication: URINARY TRACT INFECTION
     Route: 065
     Dates: start: 202103
  4. OPSUMIT [Suspect]
     Active Substance: MACITENTAN
     Indication: PULMONARY ARTERIAL HYPERTENSION
     Dosage: 10 MG, QD
     Route: 048
     Dates: start: 20180101, end: 20190726
  5. VENTAVIS [Concomitant]
     Active Substance: ILOPROST
     Dosage: UNK
     Route: 055
     Dates: end: 2019
  6. FUROSEMIDE. [Concomitant]
     Active Substance: FUROSEMIDE
  7. NITROFURANTOIN. [Suspect]
     Active Substance: NITROFURANTOIN
     Indication: SINUSITIS
  8. SILDENAFIL. [Concomitant]
     Active Substance: SILDENAFIL
  9. VICODIN [Concomitant]
     Active Substance: ACETAMINOPHEN\HYDROCODONE BITARTRATE
     Route: 065
  10. PLATINOL [Concomitant]
     Active Substance: CISPLATIN
     Route: 065
  11. OPSUMIT [Suspect]
     Active Substance: MACITENTAN
     Dosage: 10 MG, QD
     Route: 048
     Dates: start: 20190814, end: 20200707
  12. VENTAVIS [Concomitant]
     Active Substance: ILOPROST
     Dosage: 0.5 MG, TID
     Dates: end: 2019
  13. OPSUMIT [Suspect]
     Active Substance: MACITENTAN
     Dosage: LAST TAKING THE DRUG ON 01?SEP?2020
     Route: 048
     Dates: start: 20180101

REACTIONS (43)
  - Rheumatic fever [Not Recovered/Not Resolved]
  - Nasal congestion [Not Recovered/Not Resolved]
  - Secretion discharge [Not Recovered/Not Resolved]
  - Fluid retention [Not Recovered/Not Resolved]
  - Visual impairment [Unknown]
  - Sciatica [Unknown]
  - Influenza [Recovering/Resolving]
  - Burning sensation [Recovering/Resolving]
  - Anxiety [Not Recovered/Not Resolved]
  - Mitral valve incompetence [Not Recovered/Not Resolved]
  - Renal pain [Not Recovered/Not Resolved]
  - Aggression [Not Recovered/Not Resolved]
  - Product supply issue [Unknown]
  - Rhinorrhoea [Recovering/Resolving]
  - Sneezing [Not Recovered/Not Resolved]
  - Tachycardia [Not Recovered/Not Resolved]
  - Weight increased [Not Recovered/Not Resolved]
  - Bacterial infection [Not Recovered/Not Resolved]
  - Cough [Not Recovered/Not Resolved]
  - Dysphonia [Not Recovered/Not Resolved]
  - Sinusitis [Recovering/Resolving]
  - Pain in extremity [Unknown]
  - Immunodeficiency [Not Recovered/Not Resolved]
  - Insomnia [Unknown]
  - Back pain [Not Recovered/Not Resolved]
  - Erythema [Unknown]
  - Inflammation [Unknown]
  - Nasopharyngitis [Not Recovered/Not Resolved]
  - Blood bilirubin increased [Not Recovered/Not Resolved]
  - Arthralgia [Unknown]
  - Productive cough [Not Recovered/Not Resolved]
  - N-terminal prohormone brain natriuretic peptide increased [Not Recovered/Not Resolved]
  - Urinary tract infection bacterial [Not Recovered/Not Resolved]
  - Vasodilatation [Not Recovered/Not Resolved]
  - Spleen disorder [Not Recovered/Not Resolved]
  - Product container seal issue [Not Recovered/Not Resolved]
  - Cardiac failure [Not Recovered/Not Resolved]
  - Hypersomnia [Not Recovered/Not Resolved]
  - Arrhythmia [Not Recovered/Not Resolved]
  - Headache [Not Recovered/Not Resolved]
  - Osteopenia [Not Recovered/Not Resolved]
  - Urine output decreased [Not Recovered/Not Resolved]
  - Osteoporosis [Not Recovered/Not Resolved]

NARRATIVE: CASE EVENT DATE: 2019
